FAERS Safety Report 5186959-6 (Version None)
Quarter: 2006Q4

REPORT INFORMATION
  Report Type: 
  Country: None (occurrence: None)
  Receive Date: 20061213
  Receipt Date: 20061202
  Transmission Date: 20070319
  Serious: Yes (Death, Other)
  Sender: FDA-Public Use
  Company Number: 2006131518

PATIENT
  Age: 94 Year
  Sex: Male
  Weight: 61.2356 kg

DRUGS (5)
  1. LIPITOR [Suspect]
     Dosage: 20 MG (20 MG, 1 IN 1 D), ORAL
     Route: 048
  2. NEXIUM [Suspect]
  3. AMBIEN [Concomitant]
  4. COREG [Concomitant]
  5. DITROPAN XL [Concomitant]

REACTIONS (3)
  - CARDIAC FAILURE CONGESTIVE [None]
  - DISEASE PROGRESSION [None]
  - LYMPHOMA [None]
